FAERS Safety Report 7918842-4 (Version None)
Quarter: 2011Q4

REPORT INFORMATION
  Report Type: 
  Country: None (occurrence: None)
  Receive Date: 20111116
  Receipt Date: 20111110
  Transmission Date: 20120403
  Serious: Yes (Other)
  Sender: FDA-Public Use
  Company Number: IE-B.I. PHARMACEUTICALS,INC./RIDGEFIELD-2011-UK-01108UK

PATIENT
  Sex: Male
  Weight: 104 kg

DRUGS (6)
  1. PRADAXA [Suspect]
     Dosage: 220 MG
     Route: 048
     Dates: start: 20111012, end: 20111012
  2. ALLOPURINOL [Concomitant]
     Indication: GOUT
     Dosage: 300 MG
     Route: 048
     Dates: start: 20060101
  3. TAMBOCOR [Concomitant]
     Indication: ATRIAL FIBRILLATION
     Dosage: 100 (UNITS NOT CLEARLY SPECIFIED) BD
     Route: 048
     Dates: start: 20091101
  4. PRADAXA [Suspect]
     Indication: ATRIAL FIBRILLATION
     Dosage: 110 MG
     Route: 048
     Dates: start: 20111011, end: 20111011
  5. BISOPROLOL FUMARATE [Concomitant]
     Indication: ATRIAL FIBRILLATION
     Dosage: 10 MG
     Route: 048
     Dates: start: 20091101
  6. COLCHICINE [Concomitant]
     Indication: GOUT
     Dosage: 1000 MCG
     Route: 048
     Dates: start: 20060101

REACTIONS (5)
  - GASTRIC DISORDER [None]
  - GASTRIC PH DECREASED [None]
  - DYSPEPSIA [None]
  - ABDOMINAL DISCOMFORT [None]
  - CHEST PAIN [None]
